FAERS Safety Report 8429976-2 (Version None)
Quarter: 2012Q2

REPORT INFORMATION
  Report Type: 
  Country: None (occurrence: None)
  Receive Date: 20120323
  Receipt Date: 20110825
  Transmission Date: 20120825
  Serious: Yes (Hospitalization)
  Sender: FDA-Public Use
  Company Number: 163-21880-11083093

PATIENT
  Age: 77 Year
  Sex: Male

DRUGS (9)
  1. REVLIMID [Suspect]
     Indication: MULTIPLE MYELOMA
     Dosage: 5 MG, 1 IN 1 D, PO
     Route: 048
     Dates: start: 20110726
  2. ASPIRIN [Concomitant]
  3. FLOMAX [Concomitant]
  4. COUMADIN [Concomitant]
  5. VICODIN [Concomitant]
  6. SIMVASTATIN [Concomitant]
  7. GABAPENTIN [Concomitant]
  8. DEXAMETHASONE [Concomitant]
  9. CETIRIZINE HCL (CETIRIZINE HYDROCHLORIDE) [Concomitant]

REACTIONS (6)
  - PULMONARY EMBOLISM [None]
  - PNEUMONIA [None]
  - PLATELET COUNT DECREASED [None]
  - THROMBOSIS [None]
  - FATIGUE [None]
  - DECREASED APPETITE [None]
